FAERS Safety Report 12390042 (Version 2)
Quarter: 2016Q3

REPORT INFORMATION
  Report Type: Spontaneous
  Country: US (occurrence: US)
  Receive Date: 20160520
  Receipt Date: 20160812
  Transmission Date: 20161109
  Serious: No
  Sender: FDA-Public Use
  Company Number: US-LEO PHARMA-242044

PATIENT
  Age: 62 Year
  Sex: Male

DRUGS (2)
  1. LOSARTAN. [Concomitant]
     Active Substance: LOSARTAN
     Indication: HYPERTENSION
  2. DAIVOBET [Suspect]
     Active Substance: BETAMETHASONE DIPROPIONATE\CALCIPOTRIENE
     Indication: PSORIASIS
     Route: 061
     Dates: end: 201605

REACTIONS (4)
  - Pain [Not Recovered/Not Resolved]
  - Pain [Recovered/Resolved]
  - Rebound psoriasis [Not Recovered/Not Resolved]
  - Rash [Not Recovered/Not Resolved]
